FAERS Safety Report 7673287-X (Version None)
Quarter: 2011Q3

REPORT INFORMATION
  Report Type: 
  Country: None (occurrence: None)
  Receive Date: 20110804
  Receipt Date: 20110720
  Transmission Date: 20111222
  Serious: Yes (Life-Threatening, Hospitalization, Other)
  Sender: FDA-Public Use
  Company Number: 2011MA009187

PATIENT
  Age: 9 Year
  Sex: Male
  Weight: 38 kg

DRUGS (4)
  1. KETAMINE HCL [Suspect]
     Indication: RESPIRATORY THERAPY
     Dosage: 20 MG, IV
     Route: 042
  2. LIDOCAINE [Suspect]
     Indication: ANAESTHESIA
     Dosage: 2.7 MG/KG, 1X, TOP
     Route: 061
  3. ATROPINE [Suspect]
     Indication: PRODUCT USED FOR UNKNOWN INDICATION
     Dosage: 0.4 MG, IV
     Route: 042
  4. MIDAZOLAM HCL [Suspect]
     Indication: RESPIRATORY THERAPY
     Dosage: 8 MG, IV
     Route: 042

REACTIONS (5)
  - IRRITABILITY [None]
  - ANAPHYLACTIC REACTION [None]
  - PULMONARY OEDEMA [None]
  - LEUKOCYTOSIS [None]
  - LUNG INFILTRATION [None]
